FAERS Safety Report 17215467 (Version 2)
Quarter: 2020Q2

REPORT INFORMATION
  Report Type: Report from Study
  Country: US (occurrence: US)
  Receive Date: 20191230
  Receipt Date: 20200514
  Transmission Date: 20200713
  Serious: Yes (Hospitalization, Other)
  Sender: FDA-Public Use
  Company Number: US-ADAMAS PHARMA, LLC-2019ADA02846

PATIENT
  Age: 69 Year
  Sex: Male
  Weight: 61.22 kg

DRUGS (14)
  1. GOCOVRI [Suspect]
     Active Substance: AMANTADINE
     Dosage: 137 MG, 1X/DAY AT BEDTIME
     Route: 048
     Dates: start: 20190926, end: 2019
  2. OMEPRAZOLE. [Concomitant]
     Active Substance: OMEPRAZOLE
  3. GOCOVRI [Suspect]
     Active Substance: AMANTADINE
     Dosage: 274 MG, 1X/DAY AT BEDTIME
     Route: 048
     Dates: start: 20190828, end: 20190921
  4. B12 FOLATE [Concomitant]
  5. RASAGILINE MESYLATE. [Concomitant]
     Active Substance: RASAGILINE MESYLATE
     Dosage: 1 MG, 1X/DAY
  6. FLUTICASONE. [Concomitant]
     Active Substance: FLUTICASONE
  7. VITAMIN D3 [Concomitant]
     Active Substance: CHOLECALCIFEROL
  8. FINASTERIDE. [Concomitant]
     Active Substance: FINASTERIDE
     Indication: PROSTATOMEGALY
     Dosage: 5 MG, 1X/DAY
  9. LORATADINE. [Concomitant]
     Active Substance: LORATADINE
  10. CARBIDOPA/LEVODOPA [Concomitant]
     Active Substance: CARBIDOPA\LEVODOPA
     Dosage: 2 TABLETS, AT 4 HR INTERVALS TO TOTAL 10 TABLETS PER DAY
  11. GOCOVRI [Suspect]
     Active Substance: AMANTADINE
     Dosage: 137 MG, 1X/DAY AT BEDTIME
     Route: 048
     Dates: start: 20200406
  12. GOCOVRI [Suspect]
     Active Substance: AMANTADINE
     Indication: DYSKINESIA
     Dosage: 137 MG, 1X/DAY AT BEDTIME X 7 DAYS
     Route: 048
     Dates: start: 20190821, end: 20190827
  13. GOCOVRI [Suspect]
     Active Substance: AMANTADINE
     Dosage: 274 MG, 1X/DAY AT BEDTIME
     Route: 048
     Dates: start: 2019, end: 20200405
  14. ROPINIROLE HYDROCHLORIDE. [Concomitant]
     Active Substance: ROPINIROLE HYDROCHLORIDE
     Dosage: 1 TABLETS, 5X/DAY
     Dates: end: 20200413

REACTIONS (5)
  - Walking aid user [Not Recovered/Not Resolved]
  - Weight decreased [Not Recovered/Not Resolved]
  - Urosepsis [Recovered/Resolved]
  - Withdrawal syndrome [Recovered/Resolved]
  - Product dose omission [Unknown]

NARRATIVE: CASE EVENT DATE: 201909
